FAERS Safety Report 5191719-6 (Version None)
Quarter: 2006Q4

REPORT INFORMATION
  Report Type: 
  Country: None (occurrence: None)
  Receive Date: 20061219
  Receipt Date: 20061206
  Transmission Date: 20070319
  Serious: Yes (Life-Threatening, Hospitalization)
  Sender: FDA-Public Use
  Company Number: 2006106963

PATIENT
  Age: 74 Year
  Sex: Male
  Weight: 81.8 kg

DRUGS (6)
  1. SUTENT [Suspect]
     Indication: RENAL CELL CARCINOMA STAGE UNSPECIFIED
     Dosage: 50 MG (50 MG, 1 IN 1 D); ORAL
     Route: 048
     Dates: start: 20060802, end: 20060828
  2. LEVOTHYROXINE SODIUM [Concomitant]
  3. GLYBURIDE [Concomitant]
  4. NEURONTIN [Concomitant]
  5. INSULIN [Concomitant]
  6. GLICLAZIDE [Concomitant]

REACTIONS (7)
  - ADRENAL INSUFFICIENCY [None]
  - ASTHENIA [None]
  - CONFUSIONAL STATE [None]
  - DEEP VEIN THROMBOSIS [None]
  - DISSEMINATED INTRAVASCULAR COAGULATION [None]
  - PYREXIA [None]
  - YELLOW SKIN [None]
